FAERS Safety Report 11055813 (Version 1)
Quarter: 2015Q2

REPORT INFORMATION
  Report Type: Spontaneous
  Country: US (occurrence: None)
  Receive Date: 20150421
  Receipt Date: 20150421
  Transmission Date: 20150821
  Serious: Yes (Other)
  Sender: FDA-Public Use
  Company Number: None

PATIENT
  Age: 47 Year
  Sex: Female

DRUGS (1)
  1. BOSULIF [Suspect]
     Active Substance: BOSUTINIB MONOHYDRATE
     Indication: LEUKAEMIA
     Dosage: 60 DAYS, 400MG, DAILY, ORAL
     Route: 048

REACTIONS (7)
  - Nausea [None]
  - Headache [None]
  - Back pain [None]
  - Abdominal pain [None]
  - Vomiting [None]
  - Diarrhoea [None]
  - Bone pain [None]

NARRATIVE: CASE EVENT DATE: 201504
